FAERS Safety Report 12459275 (Version 1)
Quarter: 2016Q2

REPORT INFORMATION
  Report Type: Report from Study
  Country: US (occurrence: US)
  Receive Date: 20160613
  Receipt Date: 20160613
  Transmission Date: 20160815
  Serious: No
  Sender: FDA-Public Use
  Company Number: US-AMGEN-USASL2016072873

PATIENT
  Age: 16 Year
  Sex: Female

DRUGS (3)
  1. ENBREL [Suspect]
     Active Substance: ETANERCEPT
     Indication: JUVENILE IDIOPATHIC ARTHRITIS
     Dosage: 25 MG, QWK
     Route: 065
     Dates: start: 2016
  2. METHOTREXATE [Suspect]
     Active Substance: METHOTREXATE
     Indication: PRODUCT USED FOR UNKNOWN INDICATION
     Dosage: UNK
     Route: 065
  3. ENBREL [Suspect]
     Active Substance: ETANERCEPT
     Dosage: UNK UNK, 2 TIMES/WK
     Route: 065

REACTIONS (10)
  - Laboratory test abnormal [Not Recovered/Not Resolved]
  - Raynaud^s phenomenon [Unknown]
  - X-ray abnormal [Not Recovered/Not Resolved]
  - Irritable bowel syndrome [Unknown]
  - Joint swelling [Not Recovered/Not Resolved]
  - Intentional product misuse [Unknown]
  - Nasopharyngitis [Unknown]
  - Connective tissue disorder [Unknown]
  - Nausea [Unknown]
  - Local swelling [Not Recovered/Not Resolved]

NARRATIVE: CASE EVENT DATE: 2016
